FAERS Safety Report 21251610 (Version 10)
Quarter: 2023Q2

REPORT INFORMATION
  Report Type: Report from Study
  Country: US (occurrence: US)
  Receive Date: 20220825
  Receipt Date: 20230615
  Transmission Date: 20230721
  Serious: No
  Sender: FDA-Public Use
  Company Number: US-NOVARTISTESTPH-NVSC2022US186501

PATIENT
  Sex: Female

DRUGS (2)
  1. COSENTYX [Suspect]
     Active Substance: SECUKINUMAB
     Indication: Psoriatic arthropathy
     Dosage: 300 MG
     Route: 065
  2. COSENTYX [Suspect]
     Active Substance: SECUKINUMAB
     Indication: Psoriasis

REACTIONS (12)
  - Pain [Unknown]
  - Neck pain [Recovered/Resolved]
  - Injection site discolouration [Unknown]
  - Dizziness [Not Recovered/Not Resolved]
  - Condition aggravated [Recovered/Resolved]
  - Arthralgia [Unknown]
  - Sluggishness [Unknown]
  - Peripheral swelling [Unknown]
  - Muscular weakness [Unknown]
  - Pain in extremity [Unknown]
  - Psoriasis [Unknown]
  - Erythema [Unknown]
